FAERS Safety Report 8276533-7 (Version None)
Quarter: 2012Q2

REPORT INFORMATION
  Report Type: 
  Country: None (occurrence: None)
  Receive Date: 20120412
  Receipt Date: 20120228
  Transmission Date: 20120825
  Serious: No
  Sender: FDA-Public Use
  Company Number: US-GLAXOSMITHKLINE-A0968258A

PATIENT
  Sex: Male

DRUGS (3)
  1. JALYN [Suspect]
     Indication: PRODUCT USED FOR UNKNOWN INDICATION
  2. ALPHA BLOCKER [Concomitant]
  3. AVODART [Concomitant]

REACTIONS (1)
  - CHEST DISCOMFORT [None]
